FAERS Safety Report 5603890-X (Version None)
Quarter: 2008Q1

REPORT INFORMATION
  Report Type: 
  Country: None (occurrence: None)
  Receive Date: 20080128
  Receipt Date: 20080123
  Transmission Date: 20080703
  Serious: Yes (Death)
  Sender: FDA-Public Use
  Company Number: US-BRACCO-000146

PATIENT
  Sex: Female

DRUGS (3)
  1. MEDRONIC ACID [Suspect]
     Indication: OSTEOMYELITIS
     Route: 065
     Dates: start: 20060801, end: 20060801
  2. MEDRONIC ACID [Suspect]
     Indication: BONE SCAN
     Route: 065
     Dates: start: 20060801, end: 20060801
  3. NOVOLIN GE [Concomitant]
     Route: 065
     Dates: end: 20060801

REACTIONS (1)
  - DYSPNOEA [None]
